FAERS Safety Report 13900418 (Version 2)
Quarter: 2017Q3

REPORT INFORMATION
  Report Type: Report from Study
  Country: US (occurrence: US)
  Receive Date: 20170824
  Receipt Date: 20170921
  Transmission Date: 20171127
  Serious: Yes (Hospitalization)
  Sender: FDA-Public Use
  Company Number: PHHO2017US004047

PATIENT
  Age: 6 Year
  Sex: Male
  Weight: 22.4 kg

DRUGS (26)
  1. METHOTREXATE. [Suspect]
     Active Substance: METHOTREXATE
     Indication: ACUTE LYMPHOCYTIC LEUKAEMIA
     Dosage: 12 MG, TREATMENT DAYS 1, 8, 15, 1X
     Route: 037
     Dates: start: 20170123, end: 20170206
  2. INC424A [Suspect]
     Active Substance: RUXOLITINIB
     Indication: ACUTE LYMPHOCYTIC LEUKAEMIA
     Dosage: 25 MG, BID
     Route: 048
     Dates: start: 20170123, end: 20170306
  3. METHOTREXATE. [Suspect]
     Active Substance: METHOTREXATE
     Dosage: 12 MG, ONCE/SINGLE
     Route: 037
     Dates: start: 20170724
  4. VINCRISTINE [Suspect]
     Active Substance: VINCRISTINE
     Dosage: 1.3 MG, 1X
     Route: 042
     Dates: start: 20170327
  5. BACTRIM [Concomitant]
     Active Substance: SULFAMETHOXAZOLE\TRIMETHOPRIM
     Dosage: 1 DF, BID (400-80 MG)
     Dates: start: 20170320
  6. THIOGUANINE [Suspect]
     Active Substance: THIOGUANINE
     Indication: ACUTE LYMPHOCYTIC LEUKAEMIA
     Dosage: 60 MG, QD
     Route: 048
     Dates: start: 20170724
  7. INC424A [Suspect]
     Active Substance: RUXOLITINIB
     Dosage: 25 MG, BID
     Route: 048
     Dates: start: 20170327
  8. CYCLOPHOSPHAMIDE. [Suspect]
     Active Substance: CYCLOPHOSPHAMIDE
     Dosage: 860 MG, UNK
     Route: 042
  9. CYCLOPHOSPHAMIDE. [Suspect]
     Active Substance: CYCLOPHOSPHAMIDE
     Dosage: 876 MG, ONCE/SINGLE
     Route: 042
     Dates: start: 20170724
  10. VINCRISTINE [Suspect]
     Active Substance: VINCRISTINE
     Indication: ACUTE LYMPHOCYTIC LEUKAEMIA
     Dosage: 1.5 MG/M2/DOSE, TREATMENT DAY 15, 1X
     Route: 042
     Dates: start: 20170206, end: 20170206
  11. CYTARABINE. [Suspect]
     Active Substance: CYTARABINE
     Indication: ACUTE LYMPHOCYTIC LEUKAEMIA
     Dosage: 75 MG/M2/DOSE, TREATMENT DAYS 1-4,  8-11, 1X
     Route: 042
     Dates: start: 20170123, end: 20170202
  12. METHOTREXATE. [Suspect]
     Active Substance: METHOTREXATE
     Dosage: 4175 MG, HIGH DOSE METHOTREXATE, 1X (LATER SAME DAY 12 MG, 1X)
     Route: 037
     Dates: start: 20170327
  13. MERCAPTOPURINE. [Suspect]
     Active Substance: MERCAPTOPURINE
     Indication: ACUTE LYMPHOCYTIC LEUKAEMIA
     Dosage: 60 MG/M2/DOSE, QD  (TREATMENT DAYS 1-14)
     Route: 048
     Dates: start: 20170123, end: 20170205
  14. CYTARABINE. [Suspect]
     Active Substance: CYTARABINE
     Dosage: 64 MG, UNK
     Route: 042
  15. BACTRIM [Concomitant]
     Active Substance: SULFAMETHOXAZOLE\TRIMETHOPRIM
     Indication: PROPHYLAXIS
     Dosage: 1 DF, BID (400-80 MG)
     Route: 065
     Dates: start: 20161220, end: 20170312
  16. CYCLOPHOSPHAMIDE. [Suspect]
     Active Substance: CYCLOPHOSPHAMIDE
     Indication: ACUTE LYMPHOCYTIC LEUKAEMIA
     Dosage: 1000 MG/M2/DOSE, TREATMENT DAY 1, 1X
     Route: 042
     Dates: start: 20170123, end: 20170123
  17. VINCRISTINE [Suspect]
     Active Substance: VINCRISTINE
     Dosage: 1.3 MG, ONCE/SINGLE
     Route: 042
  18. PEGASPARGASE [Suspect]
     Active Substance: PEGASPARGASE
     Indication: ACUTE LYMPHOCYTIC LEUKAEMIA
     Dosage: 2500 IU/M2/DOSE, TREATMENT DAY 15, 1X
     Route: 042
     Dates: start: 20170206, end: 20170206
  19. PEGASPARGASE [Suspect]
     Active Substance: PEGASPARGASE
     Dosage: 2175 IU, ONCE/SINGLE
     Route: 042
  20. CYTARABINE. [Suspect]
     Active Substance: CYTARABINE
     Dosage: 66 MG, ONCE/SINGLE
     Route: 042
     Dates: start: 20170724
  21. LEUCOVORIN. [Suspect]
     Active Substance: LEUCOVORIN
     Indication: LYMPHOCYTIC LEUKAEMIA
     Dosage: 15 MG, Q6H
     Route: 048
     Dates: start: 20170329
  22. INC424A [Suspect]
     Active Substance: RUXOLITINIB
     Dosage: 25 MG, BID
     Route: 048
     Dates: start: 20170724
  23. MERCAPTOPURINE. [Suspect]
     Active Substance: MERCAPTOPURINE
     Dosage: 25 MG, QD
     Route: 048
     Dates: start: 20170327
  24. PEGASPARGASE [Suspect]
     Active Substance: PEGASPARGASE
     Dosage: 21.75 IU, ONCE/SINGLE
     Route: 042
  25. LEVOFLOXACIN. [Concomitant]
     Active Substance: LEVOFLOXACIN
     Indication: PROPHYLAXIS
     Dosage: 225 MG, QD
     Route: 048
     Dates: start: 20170303
  26. VINCRISTINE [Suspect]
     Active Substance: VINCRISTINE
     Dosage: 1.3 MG, ONCE/SINGLE
     Route: 042
     Dates: start: 20170808

REACTIONS (5)
  - Metapneumovirus infection [Recovered/Resolved]
  - Febrile neutropenia [Recovered/Resolved]
  - Febrile neutropenia [Recovered/Resolved]
  - Pyrexia [Recovered/Resolved]
  - Febrile neutropenia [Recovering/Resolving]

NARRATIVE: CASE EVENT DATE: 20170211
